FAERS Safety Report 10979490 (Version 4)
Quarter: 2015Q2

REPORT INFORMATION
  Report Type: Report from Study
  Country: CA (occurrence: CA)
  Receive Date: 20150402
  Receipt Date: 20150514
  Transmission Date: 20150821
  Serious: Yes (Other)
  Sender: FDA-Public Use
  Company Number: CA-ABBVIE-15K-028-1369514-00

PATIENT
  Sex: Female

DRUGS (1)
  1. HUMIRA [Suspect]
     Active Substance: ADALIMUMAB
     Indication: PSORIASIS
     Route: 058
     Dates: start: 20100729

REACTIONS (6)
  - Dizziness [Recovered/Resolved]
  - Amnesia [Unknown]
  - Memory impairment [Not Recovered/Not Resolved]
  - Blindness [Not Recovered/Not Resolved]
  - Deafness [Not Recovered/Not Resolved]
  - Hallucination [Recovered/Resolved]
